FAERS Safety Report 22599617 (Version 1)
Quarter: 2023Q2

REPORT INFORMATION
  Report Type: Spontaneous
  Country: JP (occurrence: JP)
  Receive Date: 20230614
  Receipt Date: 20230614
  Transmission Date: 20230722
  Serious: Yes (Death, Life-Threatening)
  Sender: FDA-Public Use
  Company Number: JP-RECORDATI RARE DISEASE INC.-2023003650

PATIENT

DRUGS (11)
  1. COSMEGEN [Suspect]
     Active Substance: DACTINOMYCIN
     Indication: Atypical teratoid/rhabdoid tumour of CNS
     Dosage: UNK
  2. COSMEGEN [Suspect]
     Active Substance: DACTINOMYCIN
     Indication: Off label use
  3. METHOTREXATE [Concomitant]
     Active Substance: METHOTREXATE
     Indication: Atypical teratoid/rhabdoid tumour of CNS
     Dosage: UNK(A TOTAL OF 6 COURSES )
  4. DOXORUBICIN HYDROCHLORIDE [Concomitant]
     Active Substance: DOXORUBICIN HYDROCHLORIDE
     Indication: Atypical teratoid/rhabdoid tumour of CNS
     Dosage: UNK
  5. IFOSFAMIDE [Concomitant]
     Active Substance: IFOSFAMIDE
     Indication: Atypical teratoid/rhabdoid tumour of CNS
  6. CARBOPLATIN [Concomitant]
     Active Substance: CARBOPLATIN
     Indication: Atypical teratoid/rhabdoid tumour of CNS
  7. ETOPOSIDE [Concomitant]
     Active Substance: ETOPOSIDE
     Indication: Atypical teratoid/rhabdoid tumour of CNS
     Dosage: UNK
  8. VINCRISTINE SULFATE [Concomitant]
     Active Substance: VINCRISTINE SULFATE
     Indication: Atypical teratoid/rhabdoid tumour of CNS
     Dosage: UNK
  9. CYCLOPHOSPHAMIDE [Concomitant]
     Active Substance: CYCLOPHOSPHAMIDE
     Indication: Atypical teratoid/rhabdoid tumour of CNS
     Dosage: UNK
  10. THIOTEPA [Concomitant]
     Active Substance: THIOTEPA
     Indication: Atypical teratoid/rhabdoid tumour of CNS
     Dosage: UNK
  11. MELPHALAN [Concomitant]
     Active Substance: MELPHALAN
     Indication: Atypical teratoid/rhabdoid tumour of CNS

REACTIONS (3)
  - Central nervous system lesion [Fatal]
  - Central nervous system lesion [Unknown]
  - Off label use [Recovered/Resolved]
